FAERS Safety Report 18757704 (Version 1)
Quarter: 2021Q1

REPORT INFORMATION
  Report Type: Spontaneous
  Country: US (occurrence: US)
  Receive Date: 20210119
  Receipt Date: 20210119
  Transmission Date: 20210419
  Serious: No
  Sender: FDA-Public Use
  Company Number: US-TAKEDA-2021TUS001973

PATIENT
  Age: 54 Year
  Sex: Female

DRUGS (15)
  1. OXYBUTININ ACCORD [Concomitant]
     Active Substance: OXYBUTYNIN
     Dosage: 10 MILLIGRAM, QD
  2. PROTONIX [OMEPRAZOLE] [Concomitant]
     Active Substance: OMEPRAZOLE
     Dosage: 40 MILLIGRAM, BID
  3. LIDOCAINE. [Concomitant]
     Active Substance: LIDOCAINE
  4. TIROSINT [Concomitant]
     Active Substance: LEVOTHYROXINE SODIUM
     Indication: THYROID DISORDER
  5. GABAPENTIN. [Concomitant]
     Active Substance: GABAPENTIN
     Dosage: 1600 MILLIGRAM, QD
  6. VOLTAREN EMULGEL BACK + MUSCLE PAIN [Concomitant]
     Active Substance: DICLOFENAC DIETHYLAMINE
  7. METHOCARBAMOL. [Concomitant]
     Active Substance: METHOCARBAMOL
     Dosage: 6 DOSAGE FORM, QD
  8. ADDERALL XR [Suspect]
     Active Substance: AMPHETAMINE ASPARTATE\AMPHETAMINE SULFATE\DEXTROAMPHETAMINE SACCHARATE\DEXTROAMPHETAMINE SULFATE
     Indication: PRODUCT USED FOR UNKNOWN INDICATION
     Dosage: 30 MILLIGRAM, QD
     Route: 065
  9. EFFEXOR [Concomitant]
     Active Substance: VENLAFAXINE HYDROCHLORIDE
     Dosage: 75 MILLIGRAM, QD
  10. OFATUMUMAB [Suspect]
     Active Substance: OFATUMUMAB
     Indication: MULTIPLE SCLEROSIS
     Dosage: 20 MILLIGRAM, Q4WEEKS
     Route: 058
     Dates: start: 20201013
  11. MODAFINIL. [Concomitant]
     Active Substance: MODAFINIL
     Dosage: 200 MILLIGRAM, QD
  12. VITAMIN D3 [Concomitant]
     Active Substance: CHOLECALCIFEROL
     Dosage: 80000 INTERNATIONAL UNIT
  13. CELECOXIB. [Concomitant]
     Active Substance: CELECOXIB
     Dosage: UNK UNK, BID
  14. CITRICAL [CALCIUM] [Concomitant]
     Dosage: UNK UNK, BID
  15. LYRICA [Concomitant]
     Active Substance: PREGABALIN
     Indication: PAIN

REACTIONS (6)
  - Fatigue [Recovering/Resolving]
  - Back pain [Unknown]
  - Asthenia [Unknown]
  - Teeth brittle [Unknown]
  - Balance disorder [Unknown]
  - Depression [Recovering/Resolving]

NARRATIVE: CASE EVENT DATE: 20201013
